FAERS Safety Report 16055243 (Version 1)
Quarter: 2019Q1

REPORT INFORMATION
  Report Type: Spontaneous
  Country: US (occurrence: US)
  Receive Date: 20190311
  Receipt Date: 20190311
  Transmission Date: 20190418
  Serious: No
  Sender: FDA-Public Use
  Company Number: US-GLAXOSMITHKLINE-US2019040284

PATIENT
  Sex: Male

DRUGS (1)
  1. FLOVENT [Suspect]
     Active Substance: FLUTICASONE PROPIONATE
     Indication: EOSINOPHILIC OESOPHAGITIS
     Dosage: 2 DF, BID (2 SPRAYS TWICE DAILY)

REACTIONS (4)
  - Wrong technique in device usage process [Unknown]
  - Dysphonia [Unknown]
  - Off label use [Unknown]
  - Product use in unapproved indication [Unknown]
